FAERS Safety Report 21330031 (Version 3)
Quarter: 2023Q2

REPORT INFORMATION
  Report Type: Spontaneous
  Country: US (occurrence: US)
  Receive Date: 20220913
  Receipt Date: 20230427
  Transmission Date: 20230722
  Serious: No
  Sender: FDA-Public Use
  Company Number: US-PFIZER INC-PV202200061264

PATIENT
  Age: 70 Year
  Sex: Female

DRUGS (1)
  1. EUCRISA [Suspect]
     Active Substance: CRISABOROLE
     Dosage: 100G TUBE, APPLY TO AFFECTED AREA(S) ON EARS, FACE, ARMS, AND TRUNK TWICE A DAY AS DIRECTED
     Route: 061

REACTIONS (1)
  - Drug ineffective [Unknown]
